FAERS Safety Report 10060181 (Version 2)
Quarter: 2014Q2

REPORT INFORMATION
  Report Type: Spontaneous
  Country: US (occurrence: US)
  Receive Date: 20140404
  Receipt Date: 20140520
  Transmission Date: 20141212
  Serious: Yes (Other)
  Sender: FDA-Public Use
  Company Number: US-TEVA-473185USA

PATIENT
  Age: 50 Year
  Sex: Female

DRUGS (7)
  1. COPAXONE [Suspect]
     Indication: MULTIPLE SCLEROSIS
     Dates: end: 201206
  2. TYSABRI [Suspect]
     Dosage: 300 MG/15 ML
     Dates: start: 201206, end: 20140109
  3. PREVACID [Concomitant]
  4. ZOLOFT [Concomitant]
     Dosage: 100 MILLIGRAM DAILY;
  5. CLONAZEPAM [Concomitant]
     Dosage: 1-2 Q HS
     Route: 048
  6. BACLOFEN [Concomitant]
     Dosage: 30 MILLIGRAM DAILY;
     Route: 048
  7. OXYCODONE [Concomitant]
     Dosage: 20 MILLIGRAM DAILY; PRN
     Route: 048

REACTIONS (9)
  - Feeling cold [Unknown]
  - Injection site reaction [Unknown]
  - Non-small cell lung cancer metastatic [Not Recovered/Not Resolved]
  - Metastatic bronchial carcinoma [Unknown]
  - Visual impairment [Recovered/Resolved]
  - Headache [Not Recovered/Not Resolved]
  - Nuclear magnetic resonance imaging abnormal [Unknown]
  - Hyperhidrosis [Unknown]
  - Chest discomfort [Unknown]
